FAERS Safety Report 21400119 (Version 1)
Quarter: 2022Q4

REPORT INFORMATION
  Report Type: Spontaneous
  Country: DE (occurrence: DE)
  Receive Date: 20221002
  Receipt Date: 20221002
  Transmission Date: 20230113
  Serious: Yes (Hospitalization, Other)
  Sender: FDA-Public Use
  Company Number: DE-ADRED-05778-01

PATIENT
  Age: 77 Year
  Sex: Male
  Weight: 94 kg

DRUGS (5)
  1. LISINOPRIL [Suspect]
     Active Substance: LISINOPRIL
     Indication: Product used for unknown indication
     Dosage: .5 DOSAGE FORMS DAILY; 12.5|20 MG, 0.5-0-0-0, LISINOPRIL COMP.ABZ 20/12.5 MG
  2. ASPIRIN [Suspect]
     Active Substance: ASPIRIN
     Indication: Product used for unknown indication
     Dosage: 100 MILLIGRAM DAILY; 0-1-0-0, ACETYLSALICYLSAURE
  3. SPIRIVA [Concomitant]
     Active Substance: TIOTROPIUM BROMIDE MONOHYDRATE
     Indication: Product used for unknown indication
     Dosage: 18 MICROGRAM DAILY; 1-0-0-0, CAPSULES WITH POWDER FOR INHALATION
  4. PANTOPRAZOLE SODIUM [Concomitant]
     Active Substance: PANTOPRAZOLE SODIUM
     Indication: Product used for unknown indication
     Dosage: 40 MILLIGRAM DAILY; 1-0-0-0
  5. ATORVASTATIN [Concomitant]
     Active Substance: ATORVASTATIN
     Indication: Product used for unknown indication
     Dosage: 40 MILLIGRAM DAILY; 0-0-1-0

REACTIONS (4)
  - Infection [Unknown]
  - Acute kidney injury [Unknown]
  - Abdominal pain [Unknown]
  - Transcription medication error [Unknown]

NARRATIVE: CASE EVENT DATE: 20200615
